FAERS Safety Report 5246165-3 (Version None)
Quarter: 2007Q1

REPORT INFORMATION
  Report Type: 
  Country: None (occurrence: None)
  Receive Date: 20070220
  Receipt Date: 20070205
  Transmission Date: 20070707
  Serious: Yes (Hospitalization)
  Sender: FDA-Public Use
  Company Number: DISJP-06-0664

PATIENT
  Age: 14 Year
  Sex: Female
  Weight: 54 kg

DRUGS (18)
  1. DIPRIVAN [Suspect]
     Indication: INDUCTION OF ANAESTHESIA
     Dosage: SEE IMAGE
     Route: 042
     Dates: start: 20040430, end: 20040430
  2. DIPRIVAN [Suspect]
     Indication: MAINTENANCE OF ANAESTHESIA
     Dosage: SEE IMAGE
     Route: 042
     Dates: start: 20040430, end: 20040430
  3. DIPRIVAN [Suspect]
     Indication: SEDATION
     Dosage: SEE IMAGE
     Route: 042
     Dates: start: 20040430, end: 20040430
  4. DIPRIVAN [Suspect]
     Indication: INDUCTION OF ANAESTHESIA
     Dosage: SEE IMAGE
     Route: 042
     Dates: start: 20040430, end: 20040430
  5. DIPRIVAN [Suspect]
     Indication: MAINTENANCE OF ANAESTHESIA
     Dosage: SEE IMAGE
     Route: 042
     Dates: start: 20040430, end: 20040430
  6. DIPRIVAN [Suspect]
     Indication: SEDATION
     Dosage: SEE IMAGE
     Route: 042
     Dates: start: 20040430, end: 20040430
  7. PRIMPERAN TAB [Concomitant]
  8. SOSEGON (PENTAZOCINE) [Concomitant]
  9. DILTIAZEM HYDROCHLORIDE [Concomitant]
  10. NICARDIPINE HYDROCHLORIDE [Concomitant]
  11. FENTANYL CITRATE [Concomitant]
  12. VECURONIUM BROMIDE [Concomitant]
  13. SEVOFLURANE [Concomitant]
  14. MANNIGAN (MANNITOL) [Concomitant]
  15. THIOPENTAL SODIUM [Concomitant]
  16. SOLU-MEDROL [Concomitant]
  17. TRANSAMIN (TRANEXAMIC ACID) [Concomitant]
  18. CEFOTIAM HYDROCHLORIDE [Concomitant]

REACTIONS (8)
  - ASPARTATE AMINOTRANSFERASE INCREASED [None]
  - BLOOD CREATINE PHOSPHOKINASE INCREASED [None]
  - BLOOD CREATINE PHOSPHOKINASE MB INCREASED [None]
  - BLOOD LACTATE DEHYDROGENASE INCREASED [None]
  - DRUG EFFECT PROLONGED [None]
  - HYPERKALAEMIA [None]
  - MYOGLOBINURIA [None]
  - PYREXIA [None]
